FAERS Safety Report 18617515 (Version 1)
Quarter: 2020Q4

REPORT INFORMATION
  Report Type: Spontaneous
  Country: US (occurrence: US)
  Receive Date: 20201215
  Receipt Date: 20201215
  Transmission Date: 20210114
  Serious: Yes (Hospitalization)
  Sender: FDA-Public Use
  Company Number: US-TEVA-2020-US-1858075

PATIENT
  Age: 17 Year
  Sex: Female
  Weight: 49.8 kg

DRUGS (7)
  1. METHOTREXATE. [Suspect]
     Active Substance: METHOTREXATE
     Dosage: CYCLE 2 AND 3
     Route: 065
  2. METHOTREXATE. [Suspect]
     Active Substance: METHOTREXATE
     Indication: PINEALOBLASTOMA
     Dosage: CYCLE 1
     Route: 065
  3. CYCLOPHOSPHAMIDE. [Concomitant]
     Active Substance: CYCLOPHOSPHAMIDE
     Indication: PINEALOBLASTOMA
     Route: 065
  4. LEUCOVORIN. [Concomitant]
     Active Substance: LEUCOVORIN
     Indication: PRODUCT USED FOR UNKNOWN INDICATION
     Dosage: 60 MG/M2 DAILY; INITIATED 24H AFTER METHOTREXATE ADMINISTRATION
     Route: 042
  5. CISPLATIN. [Concomitant]
     Active Substance: CISPLATIN
     Indication: PINEALOBLASTOMA
     Route: 065
  6. GLUCARPIDASE [Concomitant]
     Active Substance: GLUCARPIDASE
     Indication: DRUG CLEARANCE DECREASED
     Route: 042
  7. ETOPOSIDE. [Concomitant]
     Active Substance: ETOPOSIDE
     Indication: PINEALOBLASTOMA
     Route: 065

REACTIONS (1)
  - Toxic encephalopathy [Recovered/Resolved]
